FAERS Safety Report 8935366 (Version 1)
Quarter: 2012Q4

REPORT INFORMATION
  Report Type: Spontaneous
  Country: US (occurrence: None)
  Receive Date: 20121127
  Receipt Date: 20121127
  Transmission Date: 20130627
  Serious: Yes (Other)
  Sender: FDA-Public Use
  Company Number: None

PATIENT
  Age: 83 Year
  Sex: Female

DRUGS (1)
  1. JAKAFI [Suspect]
     Indication: MYELODYSPLASTIC SYNDROME
     Dosage: 20mg daily PO
     Route: 048
     Dates: start: 20120829, end: 201211

REACTIONS (2)
  - Blood count abnormal [None]
  - Transfusion [None]
